FAERS Safety Report 8604153-0 (Version None)
Quarter: 2012Q3

REPORT INFORMATION
  Report Type: 
  Country: None (occurrence: None)
  Receive Date: 20120806
  Receipt Date: 20120801
  Transmission Date: 20120928
  Serious: Yes (Other)
  Sender: FDA-Public Use
  Company Number: GER/UKI/12/0025281

PATIENT
  Age: 65 Year
  Sex: Female
  Weight: 69.85 kg

DRUGS (6)
  1. RANITIDINE HYDROCHLORIDE [Suspect]
     Indication: HERNIA
     Dosage: 1 DOSAGE FORMS, 2 IN 1 D, ORAL
     Route: 048
     Dates: start: 20120502
  2. CITALOPRAM HYDROBROMIDE [Suspect]
     Indication: ANXIETY
     Dosage: 1 DOSAGE FORMS, 1 IN 1 D, ORAL
     Route: 048
     Dates: start: 20110823
  3. ATORVASTATIN [Suspect]
     Indication: HYPERCHOLESTEROLAEMIA
     Dosage: 1 DOSAGE FORMS, 1 IN 1 D, ORAL
     Route: 048
     Dates: start: 20110914
  4. DOMPERIDONE (DOMPERIDONE) [Suspect]
     Indication: ACID BASE BALANCE ABNORMAL
     Dosage: 1 DOSAGE FORMS, 3 IN 1 D, ORAL
     Route: 048
     Dates: start: 20120301
  5. ATENOLOL [Suspect]
     Indication: PRODUCT USED FOR UNKNOWN INDICATION
     Dosage: 1 DOSAGE FORMS, 1 IN 1 D
     Dates: start: 20111115
  6. LYRICA [Suspect]
     Indication: STRESS
     Dosage: 1 DOSAGE FORMS, 1 IN 1 D, ORAL
     Route: 048
     Dates: start: 20110919

REACTIONS (2)
  - BURNING SENSATION [None]
  - ORAL DISCOMFORT [None]
